FAERS Safety Report 4863010-6 (Version None)
Quarter: 2005Q4

REPORT INFORMATION
  Report Type: 
  Country: None (occurrence: None)
  Receive Date: 20051221
  Receipt Date: 20051215
  Transmission Date: 20060501
  Serious: Yes (Death)
  Sender: FDA-Public Use
  Company Number: FR-MERCK-0512FRA00068

PATIENT
  Age: 81 Year
  Sex: Female

DRUGS (9)
  1. STROMECTOL [Suspect]
     Indication: PROPHYLAXIS
     Route: 048
     Dates: start: 20051122, end: 20051122
  2. STROMECTOL [Suspect]
     Route: 048
     Dates: start: 20051129, end: 20051129
  3. FLUINDIONE [Concomitant]
     Indication: THROMBOSIS PROPHYLAXIS
     Route: 048
     Dates: end: 20051207
  4. FLUOXETINE [Concomitant]
     Indication: DEPRESSION
     Route: 048
     Dates: end: 20051207
  5. FUROSEMIDE [Concomitant]
     Indication: HYPERTENSION
     Route: 048
     Dates: end: 20051207
  6. ZOLPIDEM TARTRATE [Concomitant]
     Indication: INSOMNIA
     Route: 048
     Dates: end: 20051207
  7. CANDESARTAN [Concomitant]
     Indication: HYPERTENSION
     Route: 048
     Dates: end: 20051207
  8. BENFLUOREX HYDROCHLORIDE [Concomitant]
     Indication: DIABETES MELLITUS NON-INSULIN-DEPENDENT
     Route: 048
     Dates: end: 20051207
  9. PRAVASTATIN SODIUM [Concomitant]
     Indication: HYPERCHOLESTEROLAEMIA
     Route: 048
     Dates: end: 20051207

REACTIONS (2)
  - BRONCHITIS [None]
  - DEATH [None]
